FAERS Safety Report 5279562-0 (Version None)
Quarter: 2007Q1

REPORT INFORMATION
  Report Type: 
  Country: None (occurrence: None)
  Receive Date: 20070323
  Receipt Date: 20070313
  Transmission Date: 20070707
  Serious: Yes (Hospitalization, Disabling)
  Sender: FDA-Public Use
  Company Number: 236019

PATIENT
  Age: 69 Year
  Sex: Male
  Weight: 78 kg

DRUGS (9)
  1. BEVACIZUMAB(BEVACIZUMAB) PWDR + SOLVENT,INFUSION SOLN, 100MG [Suspect]
     Indication: NON-SMALL CELL LUNG CANCER
     Dosage: 1395 MG, Q3W, INTRAVENOUS
     Route: 042
     Dates: start: 20061121, end: 20070105
  2. CARBOPLATIN [Suspect]
     Indication: NON-SMALL CELL LUNG CANCER
     Dosage: 650 MG, Q3W, INTRAVENOUS
     Route: 042
     Dates: start: 20061121, end: 20070105
  3. DEXAMETHASONE TAB [Concomitant]
  4. REGLAN [Concomitant]
  5. PACLITAXEL [Suspect]
     Indication: NON-SMALL CELL LUNG CANCER
     Dosage: 435 MG, Q3W, INTRAVENOUS
     Route: 042
     Dates: start: 20061121, end: 20070105
  6. EMEND [Concomitant]
  7. KYTRIL [Concomitant]
  8. PHENERGAN (PROMETHAZINE HYDROCHLORIDE) [Concomitant]
  9. PRILOSEC [Concomitant]

REACTIONS (4)
  - ABDOMINAL TENDERNESS [None]
  - EROSIVE OESOPHAGITIS [None]
  - NAUSEA [None]
  - WEIGHT DECREASED [None]
